FAERS Safety Report 7734997-9 (Version None)
Quarter: 2011Q3

REPORT INFORMATION
  Report Type: 
  Country: None (occurrence: None)
  Receive Date: 20110907
  Receipt Date: 20110901
  Transmission Date: 20111222
  Serious: Yes (Life-Threatening, Hospitalization)
  Sender: FDA-Public Use
  Company Number: FR-MPIJNJ-2011-04038

PATIENT

DRUGS (8)
  1. CLAMOXYL                           /00249601/ [Concomitant]
     Indication: PROPHYLAXIS
     Dosage: 1 MG, UNK
     Route: 048
     Dates: start: 20110727, end: 20110830
  2. ZELITREX                           /01269701/ [Concomitant]
     Dosage: 250 MG, UNK
     Route: 048
     Dates: start: 20110722, end: 20110830
  3. VELCADE [Suspect]
     Indication: MULTIPLE MYELOMA
     Dosage: 1.3 MG/M2, UNK
     Route: 042
     Dates: start: 20110817, end: 20110828
  4. LEVOTHYROXINE SODIUM [Concomitant]
     Indication: HYPOTHYROIDISM
     Dosage: 150 MG, UNK
     Route: 048
     Dates: start: 19950101
  5. BACTRIM [Concomitant]
     Indication: PROPHYLAXIS
     Dosage: 400 MG, UNK
     Route: 048
     Dates: start: 20110727, end: 20110830
  6. DEXAMETHASONE [Suspect]
     Indication: MULTIPLE MYELOMA
     Dosage: 20 MG, UNK
     Route: 048
     Dates: start: 20110817, end: 20110828
  7. INNOHEP [Concomitant]
  8. CYCLOPHOSPHAMIDE [Suspect]
     Indication: MULTIPLE MYELOMA
     Dosage: 1400 MG, UNK
     Route: 042
     Dates: start: 20110817, end: 20110817

REACTIONS (2)
  - SEPTIC SHOCK [None]
  - LUNG DISORDER [None]
